FAERS Safety Report 4594014-9 (Version None)
Quarter: 2005Q1

REPORT INFORMATION
  Report Type: 
  Country: None (occurrence: None)
  Receive Date: 20050218
  Receipt Date: 20050207
  Transmission Date: 20050727
  Serious: Yes (Hospitalization, Other)
  Sender: FDA-Public Use
  Company Number: 2005019374

PATIENT
  Age: 54 Year
  Sex: Female
  Weight: 62.2 kg

DRUGS (5)
  1. SULPERAZON (SULBACTAM, CEFOPERAZONE) [Suspect]
     Indication: PANCREATITIS
     Dosage: 2 GRAM (1 GRAM, 2 IN 1 D), INTRAVENOUS
     Route: 042
     Dates: start: 20050117, end: 20050118
  2. FAMOTIDINE [Suspect]
     Indication: PANCREATITIS
     Dosage: 40 MG (20 MG, 2 IN 1 D), INTRAVENOUS
     Route: 042
     Dates: start: 20050117, end: 20050118
  3. VOGLIBOSE (VOGLIBOSE) [Concomitant]
  4. MAGNESIUM OXIDE (MAGNESIUM OXIDE) [Concomitant]
  5. ALOSENN (ACHILLEA, RUBIA ROOT TINCTURE, SENNA FRUIT, SENNA LEAF, TARAX [Concomitant]

REACTIONS (9)
  - ANTIBODY TEST POSITIVE [None]
  - ANTINEUTROPHIL CYTOPLASMIC ANTIBODY POSITIVE [None]
  - BACK PAIN [None]
  - BASOPHIL COUNT DECREASED [None]
  - BIOPSY BONE MARROW ABNORMAL [None]
  - EOSINOPHIL COUNT INCREASED [None]
  - LEUKOPENIA [None]
  - LYMPHOCYTE COUNT INCREASED [None]
  - POST PROCEDURAL PAIN [None]
